FAERS Safety Report 18537900 (Version 4)
Quarter: 2021Q1

REPORT INFORMATION
  Report Type: Report from Study
  Country: None (occurrence: US)
  Receive Date: 20201124
  Receipt Date: 20210212
  Transmission Date: 20210419
  Serious: Yes (Other)
  Sender: FDA-Public Use
  Company Number: US-ABBVIE-20K-163-3656514-00

PATIENT
  Age: 60 Year
  Sex: Female
  Weight: 62.65 kg

DRUGS (5)
  1. HUMIRA [Suspect]
     Active Substance: ADALIMUMAB
     Indication: RHEUMATOID ARTHRITIS
     Route: 058
     Dates: start: 202003, end: 202011
  2. FLU VACCINE [Concomitant]
     Active Substance: INFLUENZA VIRUS VACCINE
     Indication: INFLUENZA IMMUNISATION
  3. HUMIRA [Suspect]
     Active Substance: ADALIMUMAB
     Route: 058
  4. HUMIRA [Suspect]
     Active Substance: ADALIMUMAB
     Route: 058
     Dates: start: 202011, end: 20210113
  5. PREDNISONE. [Concomitant]
     Active Substance: PREDNISONE
     Indication: RHEUMATOID ARTHRITIS

REACTIONS (11)
  - Joint stiffness [Not Recovered/Not Resolved]
  - Hyperhidrosis [Unknown]
  - Drug ineffective [Not Recovered/Not Resolved]
  - Lower limb fracture [Recovered/Resolved]
  - Chest wall abscess [Recovered/Resolved]
  - Tibia fracture [Recovered/Resolved]
  - Staphylococcal infection [Recovered/Resolved]
  - Pruritus allergic [Unknown]
  - Food allergy [Unknown]
  - Arthralgia [Not Recovered/Not Resolved]
  - Pain [Recovered/Resolved]

NARRATIVE: CASE EVENT DATE: 2020
